FAERS Safety Report 11740205 (Version 2)
Quarter: 2015Q4

REPORT INFORMATION
  Report Type: Spontaneous
  Country: US (occurrence: US)
  Receive Date: 20151110
  Receipt Date: 20151120
  Transmission Date: 20160304
  Serious: No
  Sender: FDA-Public Use
  Company Number: US-ELI_LILLY_AND_COMPANY-US201207004185

PATIENT
  Age: 40 Year
  Sex: Female

DRUGS (2)
  1. FORTEO [Suspect]
     Active Substance: TERIPARATIDE
     Indication: OSTEOPOROSIS
     Dosage: UNK, QD
  2. FORTEO [Suspect]
     Active Substance: TERIPARATIDE
     Dosage: UNK, QD

REACTIONS (8)
  - Malaise [Unknown]
  - Injection site haemorrhage [Unknown]
  - Nausea [Recovered/Resolved]
  - Injection site pain [Unknown]
  - Incorrect product storage [Unknown]
  - Asthenia [Unknown]
  - Dysgeusia [Unknown]
  - Vomiting [Unknown]
